FAERS Safety Report 5292627-2 (Version None)
Quarter: 2007Q2

REPORT INFORMATION
  Report Type: 
  Country: None (occurrence: None)
  Receive Date: 20070404
  Receipt Date: 20070320
  Transmission Date: 20071010
  Serious: Yes (Hospitalization)
  Sender: FDA-Public Use
  Company Number: S07-FRA-01425-01

PATIENT
  Age: 87 Year
  Sex: Female

DRUGS (5)
  1. EBIXA (MEMANTINE HYDROCHLORIDE) [Suspect]
     Indication: SENILE DEMENTIA
     Dosage: 1 UNK BID PO
     Route: 048
  2. ARICEPT [Suspect]
     Indication: SENILE DEMENTIA
     Dosage: 10 MG QD PO
     Route: 048
     Dates: end: 20070202
  3. GALANTAMINE HYDROBROMIDE [Suspect]
     Indication: SENILE DEMENTIA
     Dosage: 1 UNK QD PO
     Route: 048
     Dates: end: 20070202
  4. STABLON (TIANEPTINE) [Concomitant]
  5. BECONASE [Concomitant]

REACTIONS (3)
  - ANAEMIA [None]
  - ANOREXIA [None]
  - BRADYCARDIA [None]
